FAERS Safety Report 11677415 (Version 1)
Quarter: 2015Q4

REPORT INFORMATION
  Report Type: Spontaneous
  Country: US (occurrence: US)
  Receive Date: 20151027
  Receipt Date: 20151027
  Transmission Date: 20160304
  Serious: No
  Sender: FDA-Public Use
  Company Number: US-ELI_LILLY_AND_COMPANY-US201010003228

PATIENT
  Sex: Female

DRUGS (4)
  1. FORTEO [Suspect]
     Active Substance: TERIPARATIDE
     Dosage: 20 UG, DAILY (1/D)
     Route: 065
     Dates: start: 20101010
  2. VITAMIN D3 [Concomitant]
     Active Substance: CHOLECALCIFEROL
     Dosage: 1000 MG, UNK
  3. FORTEO [Suspect]
     Active Substance: TERIPARATIDE
     Indication: OSTEOPOROSIS
     Dosage: 20 UG, DAILY (1/D)
     Route: 065
     Dates: start: 2004, end: 2004
  4. CALCIUM [Concomitant]
     Active Substance: CALCIUM

REACTIONS (10)
  - Spinal column stenosis [Unknown]
  - Shoulder deformity [Unknown]
  - Injection site erythema [Unknown]
  - Neck deformity [Unknown]
  - Wrong technique in product usage process [Recovered/Resolved]
  - Muscle strain [Unknown]
  - Bone density decreased [Unknown]
  - Musculoskeletal stiffness [Unknown]
  - Injection site irritation [Recovered/Resolved]
  - Osteoporosis [Unknown]

NARRATIVE: CASE EVENT DATE: 2004
